FAERS Safety Report 5052063-0 (Version None)
Quarter: 2006Q3

REPORT INFORMATION
  Report Type: 
  Country: None (occurrence: None)
  Receive Date: 20060711
  Receipt Date: 20060623
  Transmission Date: 20061208
  Serious: Yes (Hospitalization)
  Sender: FDA-Public Use
  Company Number: ALMO2006067

PATIENT
  Age: 28 Year
  Sex: Female
  Weight: 63 kg

DRUGS (4)
  1. ALMOGRAN 12.5 MG 4 COMPRIMIDOS RECU [Suspect]
     Indication: MIGRAINE
     Dosage: 25 MG PO
     Route: 048
     Dates: start: 20060404, end: 20060504
  2. TOPAMAX [Suspect]
     Indication: MIGRAINE
     Dates: start: 20060404, end: 20060504
  3. NAPROXEN [Suspect]
     Indication: MIGRAINE
     Dosage: 550 MG PRN PO
     Route: 048
     Dates: start: 20040101, end: 20060501
  4. IBUPROFENO [Suspect]
     Indication: MIGRAINE
     Dosage: 400 MG PRN PO
     Route: 048
     Dates: start: 20040101, end: 20060501

REACTIONS (2)
  - AGRANULOCYTOSIS [None]
  - PYREXIA [None]
